FAERS Safety Report 6115538-9 (Version None)
Quarter: 2009Q1

REPORT INFORMATION
  Report Type: 
  Country: None (occurrence: None)
  Receive Date: 20090313
  Receipt Date: 20090303
  Transmission Date: 20090719
  Serious: Yes (Death, Other)
  Sender: FDA-Public Use
  Company Number: DE-ELI_LILLY_AND_COMPANY-DE200903000869

PATIENT
  Age: 68 Year
  Sex: Female

DRUGS (11)
  1. ZYPREXA [Suspect]
     Indication: SCHIZOPHRENIA, PARANOID TYPE
     Dosage: 5 MG, DAILY (1/D)
     Route: 048
     Dates: start: 20080303, end: 20080303
  2. ZYPREXA [Suspect]
     Dosage: 10 MG, DAILY (1/D)
     Route: 048
     Dates: start: 20080304, end: 20080311
  3. ZYPREXA [Suspect]
     Dosage: 12.5 MG, DAILY (1/D)
     Route: 048
     Dates: start: 20080312, end: 20080314
  4. FUROSEMID [Concomitant]
     Dosage: 40 MG, DAILY (1/D)
     Route: 048
     Dates: start: 20080209, end: 20080314
  5. DELIX [Concomitant]
     Dosage: 2.5 MG, DAILY (1/D)
     Route: 048
     Dates: start: 20080209, end: 20080314
  6. VITAMIN B-12 [Concomitant]
     Dosage: 1 D/F, DAILY (1/D)
     Route: 048
     Dates: start: 20080211, end: 20080314
  7. BELOC-ZOK [Concomitant]
     Dosage: 47.5 MG, DAILY (1/D)
     Route: 048
     Dates: start: 20080226, end: 20080314
  8. AMPICILLIN AND SULBACTAM [Concomitant]
     Dosage: 4500 MG, DAILY (1/D)
     Route: 042
     Dates: start: 20080226, end: 20080312
  9. HALDOL [Concomitant]
     Dosage: 2.5 MG, DAILY (1/D)
     Route: 042
     Dates: start: 20080302, end: 20080304
  10. FLUANXOL [Concomitant]
     Dosage: 4 MG, DAILY (1/D)
     Dates: start: 20071026, end: 20080304
  11. DIAZEPAM [Concomitant]
     Dosage: 2.5 MG, UNK
     Route: 042
     Dates: start: 20080302, end: 20080304

REACTIONS (8)
  - CARDIAC ARREST [None]
  - CARDIAC FAILURE ACUTE [None]
  - COMA [None]
  - ELECTROCARDIOGRAM QT PROLONGED [None]
  - GRAND MAL CONVULSION [None]
  - RENAL FAILURE ACUTE [None]
  - RESPIRATORY ARREST [None]
  - URINARY TRACT INFECTION [None]
